FAERS Safety Report 7331356-8 (Version None)
Quarter: 2011Q1

REPORT INFORMATION
  Report Type: 
  Country: None (occurrence: None)
  Receive Date: 20110304
  Receipt Date: 20100624
  Transmission Date: 20110831
  Serious: Yes (Hospitalization, Other)
  Sender: FDA-Public Use
  Company Number: US-BAYER-201016931NA

PATIENT
  Sex: Female
  Weight: 63.492 kg

DRUGS (18)
  1. YASMIN [Suspect]
     Indication: PRODUCT USED FOR UNKNOWN INDICATION
     Dosage: UNK
     Route: 048
     Dates: start: 20040101, end: 20090101
  2. ADVIL LIQUI-GELS [Concomitant]
     Dosage: UNK
     Dates: start: 20000101
  3. LEVOTHYROXINE [Concomitant]
     Dosage: UNK
     Dates: start: 20080101
  4. CELEBREX [Concomitant]
  5. METOCLOPRAMIDE [Concomitant]
  6. TRIAZOLAM [Concomitant]
  7. DICYCLOMINE [Concomitant]
     Dosage: UNK
     Dates: start: 20000101
  8. ACIPHEX [Concomitant]
  9. LORAZEPAM [Concomitant]
  10. TRAMADOL HCL [Concomitant]
  11. YAZ [Suspect]
     Indication: PRODUCT USED FOR UNKNOWN INDICATION
     Route: 048
     Dates: start: 20010101
  12. ALLEGRA [Concomitant]
  13. LIBRIUM [Concomitant]
  14. MAXALT [Concomitant]
     Dosage: UNK
     Dates: start: 20000101
  15. BENTYL [Concomitant]
  16. OCELLA [Suspect]
     Indication: PRODUCT USED FOR UNKNOWN INDICATION
     Route: 048
     Dates: start: 20010101
  17. CYMBALTA [Concomitant]
  18. TRAZODONE [Concomitant]

REACTIONS (4)
  - PULMONARY EMBOLISM [None]
  - OEDEMA PERIPHERAL [None]
  - DEEP VEIN THROMBOSIS [None]
  - PAIN IN EXTREMITY [None]
